FAERS Safety Report 21356271 (Version 7)
Quarter: 2022Q4

REPORT INFORMATION
  Report Type: Report from Study
  Country: JP (occurrence: JP)
  Receive Date: 20220920
  Receipt Date: 20221214
  Transmission Date: 20230113
  Serious: Yes (Hospitalization)
  Sender: FDA-Public Use
  Company Number: JP-PFIZER INC-PV202200064701

PATIENT
  Age: 92 Year
  Sex: Male
  Weight: 50 kg

DRUGS (4)
  1. NIRMATRELVIR\RITONAVIR [Suspect]
     Active Substance: NIRMATRELVIR\RITONAVIR
     Indication: COVID-19 treatment
     Dosage: [PF-07321332 150 MG]/[RITONAVIR 100 MG]; 2X/DAY
     Route: 048
     Dates: start: 20220906, end: 20220907
  2. LEVOFLOXACIN [Concomitant]
     Active Substance: LEVOFLOXACIN
     Indication: COVID-19 treatment
     Dosage: 250 MG, 1X/DAY
     Route: 048
     Dates: start: 20220906, end: 20220907
  3. CALONAL [Concomitant]
     Active Substance: ACETAMINOPHEN
     Indication: COVID-19 treatment
     Dosage: UNK
     Route: 048
     Dates: start: 20220906, end: 20220907
  4. VEKLURY [Concomitant]
     Active Substance: REMDESIVIR
     Indication: Hypoxia
     Dosage: UNK
     Route: 042
     Dates: start: 20220908, end: 20220910

REACTIONS (1)
  - Hypoxia [Recovered/Resolved]

NARRATIVE: CASE EVENT DATE: 20220908
